FAERS Safety Report 5621041-2 (Version None)
Quarter: 2008Q1

REPORT INFORMATION
  Report Type: 
  Country: None (occurrence: None)
  Receive Date: 20080208
  Receipt Date: 20080129
  Transmission Date: 20080703
  Serious: Yes (Other)
  Sender: FDA-Public Use
  Company Number: BR-PFIZER INC-2008010462

PATIENT
  Sex: Male

DRUGS (4)
  1. TOLTERODINE TARTRATE [Suspect]
     Indication: HYPERTONIC BLADDER
     Route: 048
     Dates: start: 20070701, end: 20070701
  2. CARBAMAZEPINE [Concomitant]
  3. DIAZEPAM [Concomitant]
  4. BACLOFEN [Concomitant]

REACTIONS (3)
  - BLADDER DISORDER [None]
  - GASTROINTESTINAL DISORDER [None]
  - RESIDUAL URINE VOLUME [None]
